FAERS Safety Report 7136854-8 (Version None)
Quarter: 2010Q4

REPORT INFORMATION
  Report Type: 
  Country: None (occurrence: None)
  Receive Date: 20101119
  Receipt Date: 20101108
  Transmission Date: 20110411
  Serious: Yes (Other)
  Sender: FDA-Public Use
  Company Number: 2010SP059543

PATIENT
  Age: 75 Year
  Sex: Female

DRUGS (7)
  1. CHLOR-TRIMETON [Suspect]
     Indication: COUGH
     Dosage: 12 MG, ORAL
     Route: 048
     Dates: start: 19520101
  2. CHLOR-TRIMETON [Suspect]
     Indication: DYSPHORIA
     Dosage: 12 MG, ORAL
     Route: 048
     Dates: start: 19520101
  3. CHLOR-TRIMETON [Suspect]
     Indication: RHINORRHOEA
     Dosage: 12 MG, ORAL
     Route: 048
     Dates: start: 19520101
  4. CELEBREX [Concomitant]
  5. VITAMINS [Concomitant]
  6. DELSYN [Concomitant]
  7. BETA BLOCKER [Concomitant]

REACTIONS (1)
  - LEUKAEMIA [None]
